FAERS Safety Report 7308569-4 (Version None)
Quarter: 2011Q1

REPORT INFORMATION
  Report Type: 
  Country: None (occurrence: None)
  Receive Date: 20110223
  Receipt Date: 20101223
  Transmission Date: 20110831
  Serious: Yes (Hospitalization, Other)
  Sender: FDA-Public Use
  Company Number: US-BAYER-201023031NA

PATIENT
  Sex: Female

DRUGS (8)
  1. IBUPROFENO [Concomitant]
     Dosage: 800 MG, UNK
     Dates: start: 20050322
  2. NAPROXEN [Concomitant]
     Dosage: 500 MG, UNK
     Dates: start: 20061022
  3. YASMIN [Suspect]
     Indication: PRODUCT USED FOR UNKNOWN INDICATION
     Route: 048
     Dates: start: 20060501, end: 20080701
  4. NAPROXEN [Concomitant]
     Dosage: 500 MG, UNK
     Dates: start: 20090507
  5. NAPROXEN [Concomitant]
     Dosage: 500 MG, UNK
     Dates: start: 20090517
  6. IBUPROFENO [Concomitant]
     Dosage: 800 MG, UNK
     Dates: start: 20050711
  7. IBUPROFENO [Concomitant]
     Dosage: 600 MG, UNK
     Dates: start: 20090408
  8. NAPROXEN [Concomitant]
     Dosage: 500 MG, UNK
     Dates: start: 20060806

REACTIONS (1)
  - CHOLECYSTITIS [None]
